FAERS Safety Report 4744771-3 (Version None)
Quarter: 2005Q3

REPORT INFORMATION
  Report Type: 
  Country: None (occurrence: None)
  Receive Date: 20050812
  Receipt Date: 20050812
  Transmission Date: 20060218
  Serious: Yes (Hospitalization, Other)
  Sender: FDA-Public Use
  Company Number: None

PATIENT
  Sex: Female
  Weight: 67.1 kg

DRUGS (1)
  1. INTERERFERON-ALPHA [Suspect]
     Indication: RENAL CELL CARCINOMA STAGE UNSPECIFIED
     Dosage: SEE IMAGE
     Route: 058
     Dates: start: 20050801, end: 20050808

REACTIONS (3)
  - NEUTROPHIL COUNT ABNORMAL [None]
  - SEPTIC SHOCK [None]
  - URINARY TRACT INFECTION [None]
